FAERS Safety Report 8313058-4 (Version None)
Quarter: 2012Q2

REPORT INFORMATION
  Report Type: 
  Country: None (occurrence: None)
  Receive Date: 20120426
  Receipt Date: 20120423
  Transmission Date: 20120825
  Serious: Yes (Other)
  Sender: FDA-Public Use
  Company Number: US-PFIZER INC-2012066487

PATIENT
  Sex: Female
  Weight: 141 kg

DRUGS (3)
  1. LISINOPRIL [Concomitant]
     Indication: HYPERTENSION
     Dosage: 25 MG, UNK
  2. LYRICA [Suspect]
     Indication: PAIN
     Dosage: 225 MG, 1X/DAY
     Route: 048
     Dates: start: 20120307
  3. LYRICA [Suspect]
     Indication: FIBROMYALGIA
     Dosage: 225 MG, 2X/DAY
     Route: 048
     Dates: start: 20080101, end: 20120306

REACTIONS (5)
  - RHEUMATOID ARTHRITIS [None]
  - PAIN [None]
  - NECK PAIN [None]
  - CYTOLOGY ABNORMAL [None]
  - BLOOD IRON DECREASED [None]
